FAERS Safety Report 11701283 (Version 1)
Quarter: 2015Q4

REPORT INFORMATION
  Report Type: Spontaneous
  Country: US (occurrence: JP)
  Receive Date: 20151105
  Receipt Date: 20151105
  Transmission Date: 20160304
  Serious: Yes (Other)
  Sender: FDA-Public Use
  Company Number: US-AKORN PHARMACEUTICALS-2015AKN00642

PATIENT
  Age: 71 Year
  Sex: Male

DRUGS (13)
  1. U PAN [Concomitant]
     Active Substance: LORAZEPAM
     Dosage: UNK TABLETS, UNK
     Dates: end: 20130810
  2. AMOBAN [Concomitant]
     Active Substance: ZOPICLONE
     Dosage: UNK TABLETS, UNK
  3. ZIOPTAN [Suspect]
     Active Substance: TAFLUPROST
     Indication: GLAUCOMA
     Dosage: 1 GTT, QD
     Dates: start: 20130731
  4. ADETPHOS [Concomitant]
     Active Substance: ADENOSINE TRIPHOSPHATE
     Dosage: GRANULES
  5. SANCOBA [Concomitant]
     Active Substance: CYANOCOBALAMIN
     Dosage: EYE DROPS, 0.02 %
     Route: 047
  6. MERISLON [Concomitant]
     Active Substance: BETAHISTINE MESILATE
     Dosage: UNK TABLETS, UNK
  7. CALCIUM CARBONATE. [Concomitant]
     Active Substance: CALCIUM CARBONATE
     Dosage: UNK TABLETS, UNK
     Dates: end: 20130710
  8. REMERON [Concomitant]
     Active Substance: MIRTAZAPINE
     Dosage: UNK TABLETS, UNK
     Dates: end: 20130910
  9. KARY UNI [Concomitant]
     Active Substance: PIRENOXINE
     Dosage: EYE DROPS, 0.005 %
     Route: 047
  10. TERNELIN [Concomitant]
     Active Substance: TIZANIDINE
     Dosage: UNK TABLETS, UNK
  11. CEPHADOL [Concomitant]
     Active Substance: DIPHENIDOL HYDROCHLORIDE
     Dosage: UNK TABLETS, UNK
     Dates: start: 20150729
  12. BAYASPIRIN [Concomitant]
     Active Substance: ASPIRIN
     Dosage: UNK TABLETS, UNK
     Dates: start: 20150729
  13. NEXIUM [Concomitant]
     Active Substance: ESOMEPRAZOLE MAGNESIUM
     Dosage: UNK CAPSULES, UNK
     Dates: start: 20150729

REACTIONS (3)
  - Anal fistula [Unknown]
  - Nasopharyngitis [Unknown]
  - Amaurosis fugax [Unknown]

NARRATIVE: CASE EVENT DATE: 20131004
